FAERS Safety Report 4897741-9 (Version None)
Quarter: 2006Q1

REPORT INFORMATION
  Report Type: 
  Country: None (occurrence: None)
  Receive Date: 20060201
  Receipt Date: 20060116
  Transmission Date: 20060701
  Serious: Yes (Hospitalization)
  Sender: FDA-Public Use
  Company Number: CN-AVENTIS-200610469GDDC

PATIENT
  Age: 60 Year
  Sex: Female
  Weight: 61 kg

DRUGS (5)
  1. TAXOTERE [Suspect]
     Indication: BREAST CANCER METASTATIC
     Route: 042
     Dates: start: 20051225, end: 20051225
  2. TAXOTERE [Suspect]
     Indication: METASTASES TO LIVER
     Route: 042
     Dates: start: 20051225, end: 20051225
  3. TAXOTERE [Suspect]
     Indication: METASTASES TO LUNG
     Route: 042
     Dates: start: 20051225, end: 20051225
  4. XELODA [Concomitant]
     Indication: BREAST CANCER
     Route: 048
     Dates: start: 20051225, end: 20051225
  5. DEXAMETHASONE TAB [Concomitant]
     Indication: PROPHYLAXIS
     Route: 048
     Dates: start: 20051224, end: 20051226

REACTIONS (6)
  - BLOOD CREATININE INCREASED [None]
  - BLOOD POTASSIUM INCREASED [None]
  - HAEMODIALYSIS [None]
  - NAUSEA [None]
  - RENAL FAILURE ACUTE [None]
  - VOMITING [None]
